FAERS Safety Report 16478304 (Version 1)
Quarter: 2019Q2

REPORT INFORMATION
  Report Type: Spontaneous
  Country: CN (occurrence: CN)
  Receive Date: 20190626
  Receipt Date: 20190626
  Transmission Date: 20190711
  Serious: Yes (Hospitalization)
  Sender: FDA-Public Use
  Company Number: CN-PFIZER INC-2019267247

PATIENT
  Age: 73 Year
  Sex: Male
  Weight: 60 kg

DRUGS (5)
  1. XIYANPING [Concomitant]
     Active Substance: HERBALS
     Indication: THERAPEUTIC PROCEDURE
     Dosage: 250 MG, 1X/DAY
     Route: 041
     Dates: start: 20190611, end: 20190612
  2. ACYCLOVIR [ACICLOVIR] [Suspect]
     Active Substance: ACYCLOVIR
     Indication: ANTIVIRAL TREATMENT
     Dosage: 2 G, 2X/DAY
     Route: 041
     Dates: start: 20190611, end: 20190612
  3. YI SUO [DOXOFYLLINE] [Concomitant]
     Active Substance: DOXOFYLLINE
     Indication: THERAPEUTIC PROCEDURE
     Dosage: 0.2 G, 2X/DAY
     Route: 041
     Dates: start: 20190611, end: 20190612
  4. SOLU-MEDROL [Suspect]
     Active Substance: METHYLPREDNISOLONE SODIUM SUCCINATE
     Indication: THERAPEUTIC PROCEDURE
     Dosage: 40 MG, 1X/DAY
     Route: 041
     Dates: start: 20190610, end: 20190613
  5. CIMETIDINE [Suspect]
     Active Substance: CIMETIDINE
     Indication: THERAPEUTIC PROCEDURE
     Dosage: 0.2 G, 1X/DAY
     Route: 041
     Dates: start: 20190610, end: 20190612

REACTIONS (2)
  - Acute kidney injury [Recovering/Resolving]
  - Mental disorder [Recovering/Resolving]

NARRATIVE: CASE EVENT DATE: 20190612
